FAERS Safety Report 8370921-6 (Version None)
Quarter: 2012Q2

REPORT INFORMATION
  Report Type: 
  Country: None (occurrence: None)
  Receive Date: 20120518
  Receipt Date: 20120315
  Transmission Date: 20120825
  Serious: No
  Sender: FDA-Public Use
  Company Number: US-BAUSCH-2012BL001877

PATIENT
  Age: 64 Year
  Sex: Male

DRUGS (3)
  1. FLOMAX [Concomitant]
  2. PROSCAR /USA/ [Concomitant]
  3. IPRATROPIUM BROMIDE [Suspect]
     Indication: RHINORRHOEA
     Route: 045
     Dates: start: 20120221

REACTIONS (2)
  - URINE OUTPUT DECREASED [None]
  - URINARY RETENTION [None]
